FAERS Safety Report 5139986-9 (Version None)
Quarter: 2006Q4

REPORT INFORMATION
  Report Type: 
  Country: None (occurrence: None)
  Receive Date: 20061031
  Receipt Date: 20041115
  Transmission Date: 20070319
  Serious: Yes (Hospitalization, Disabling)
  Sender: FDA-Public Use
  Company Number: 200414274FR

PATIENT
  Age: 75 Year
  Sex: Female

DRUGS (13)
  1. CORTANCYL [Suspect]
     Route: 048
     Dates: end: 20040201
  2. CORTANCYL [Suspect]
     Route: 048
     Dates: start: 20040201
  3. HUMIRA [Suspect]
     Route: 058
     Dates: start: 20040201, end: 20040702
  4. HUMIRA [Suspect]
     Route: 058
     Dates: start: 20040701
  5. IMUREL [Suspect]
     Route: 048
  6. LASILIX                            /00032601/ [Suspect]
     Route: 048
  7. ADALATE 20 MG LP [Suspect]
     Route: 048
  8. ASPEGIC                            /00002703/ [Suspect]
     Route: 048
  9. LEVOTHYROXINE SODIUM [Concomitant]
     Route: 048
  10. LIPANTHYL [Concomitant]
     Route: 048
  11. OMEPRAZOLE [Concomitant]
     Route: 048
  12. CALCIUM WITH VITAMIN D             /01233101/ [Concomitant]
     Route: 048
  13. DUPHALAC [Concomitant]
     Route: 048

REACTIONS (6)
  - CONDITION AGGRAVATED [None]
  - HYPOXIA [None]
  - PULMONARY FIBROSIS [None]
  - RESPIRATORY FAILURE [None]
  - SOMNOLENCE [None]
  - SUPERINFECTION LUNG [None]
